FAERS Safety Report 18583775 (Version 2)
Quarter: 2021Q1

REPORT INFORMATION
  Report Type: Other
  Country: CA (occurrence: CA)
  Receive Date: 20201207
  Receipt Date: 20210118
  Transmission Date: 20210419
  Serious: Yes (Hospitalization, Other)
  Sender: FDA-Public Use
  Company Number: CA-CELLTRION INC.-2020CA033003

PATIENT

DRUGS (21)
  1. BOSENTAN. [Concomitant]
     Active Substance: BOSENTAN
  2. DIPHENHYDRAMINE HYDROCHLORIDE. [Concomitant]
     Active Substance: DIPHENHYDRAMINE HYDROCHLORIDE
     Indication: PREMEDICATION
     Dosage: 50.0 MILLIGRAM
     Route: 048
  3. PREDNISONE. [Concomitant]
     Active Substance: PREDNISONE
  4. RABEPRAZOLE [Concomitant]
     Active Substance: RABEPRAZOLE
  5. SULFAMETHOXAZOLE [Concomitant]
     Active Substance: SULFAMETHOXAZOLE
  6. BISOPROLOL [Concomitant]
     Active Substance: BISOPROLOL
  7. LASIX [Concomitant]
     Active Substance: FUROSEMIDE
  8. RITUXIMAB (UNKNOWN) [Suspect]
     Active Substance: RITUXIMAB
     Dosage: UNK
     Route: 042
  9. CODEINE PHOSPHATE [Concomitant]
     Active Substance: CODEINE PHOSPHATE
  10. LEVOFLOXACIN. [Concomitant]
     Active Substance: LEVOFLOXACIN
  11. TYLENOL [Concomitant]
     Active Substance: ACETAMINOPHEN
     Indication: PREMEDICATION
     Dosage: 650.0 MILLIGRAM
     Route: 048
  12. IRON SULPHATE [Concomitant]
     Active Substance: FERROUS SULFATE ANHYDROUS
  13. SALMETEROL [Concomitant]
     Active Substance: SALMETEROL
  14. RITUXIMAB (UNKNOWN) [Suspect]
     Active Substance: RITUXIMAB
     Indication: SCLERODERMA
     Dosage: 1 EVERY 15 DAYS
     Route: 042
  15. DOMPERIDONE [Concomitant]
     Active Substance: DOMPERIDONE
  16. METHYLPREDNISOLONE. [Concomitant]
     Active Substance: METHYLPREDNISOLONE
     Indication: PREMEDICATION
     Dosage: 100.0 MILLIGRAM
     Route: 042
  17. METHYLPREDNISOLONE SODIUM SUCCINATE. [Concomitant]
     Active Substance: METHYLPREDNISOLONE SODIUM SUCCINATE
     Indication: PREMEDICATION
     Route: 042
  18. CALCIUM [Concomitant]
     Active Substance: CALCIUM
  19. ACETAMINOPHEN. [Concomitant]
     Active Substance: ACETAMINOPHEN
     Indication: PREMEDICATION
     Dosage: 650.0 MILLIGRAM
     Route: 048
  20. RAMIPRIL. [Concomitant]
     Active Substance: RAMIPRIL
  21. RITUXIMAB (UNKNOWN) [Suspect]
     Active Substance: RITUXIMAB
     Dosage: 1000.0 MILLIGRAM
     Route: 042

REACTIONS (18)
  - Blood pressure systolic abnormal [Recovered/Resolved]
  - Blood pressure systolic increased [Recovered/Resolved]
  - Dyspnoea exertional [Recovered/Resolved]
  - Mobility decreased [Recovered/Resolved]
  - Respiratory rate increased [Recovered/Resolved]
  - Heart rate increased [Recovered/Resolved]
  - Skin hypertrophy [Recovered/Resolved]
  - Dyspnoea [Recovered/Resolved]
  - Arrhythmia [Recovered/Resolved]
  - Influenza [Recovered/Resolved]
  - Heart rate irregular [Recovered/Resolved]
  - Oxygen saturation decreased [Recovered/Resolved]
  - Pneumonia [Recovered/Resolved]
  - Blood pressure fluctuation [Recovered/Resolved]
  - Off label use [Recovered/Resolved]
  - Skin induration [Recovered/Resolved]
  - Nocturnal dyspnoea [Recovered/Resolved]
  - Heart rate decreased [Recovered/Resolved]
